FAERS Safety Report 22609232 (Version 2)
Quarter: 2023Q2

REPORT INFORMATION
  Report Type: Spontaneous
  Country: PE (occurrence: PE)
  Receive Date: 20230616
  Receipt Date: 20230629
  Transmission Date: 20230721
  Serious: Yes (Other)
  Sender: FDA-Public Use
  Company Number: PE-SA-SAC20230615001804

PATIENT
  Age: 83 Year
  Sex: Male

DRUGS (2)
  1. IRBESARTAN [Suspect]
     Active Substance: IRBESARTAN
     Indication: Hypertension
     Dosage: 1 DF, QD
     Route: 048
     Dates: start: 2015
  2. AMARYL [Suspect]
     Active Substance: GLIMEPIRIDE
     Indication: Type 1 diabetes mellitus
     Dosage: 1 DF, QD, ON AN EMPTY STOMACH
     Route: 048
     Dates: start: 2015

REACTIONS (4)
  - Type 1 diabetes mellitus [Recovering/Resolving]
  - Eating disorder [Recovered/Resolved]
  - Blood glucose increased [Recovering/Resolving]
  - Cardiac disorder [Recovered/Resolved]

NARRATIVE: CASE EVENT DATE: 20150101
